FAERS Safety Report 16874270 (Version 1)
Quarter: 2019Q4

REPORT INFORMATION
  Report Type: Spontaneous
  Country: GB (occurrence: GB)
  Receive Date: 20191001
  Receipt Date: 20191001
  Transmission Date: 20200122
  Serious: Yes (Death)
  Sender: FDA-Public Use
  Company Number: GB-MYLANLABS-MK-6027156

PATIENT
  Age: 56 Year
  Sex: Male
  Weight: 86 kg

DRUGS (1)
  1. CITALOPRAM [Suspect]
     Active Substance: CITALOPRAM HYDROBROMIDE
     Indication: PRODUCT USED FOR UNKNOWN INDICATION
     Dosage: UNK,TAKEN IN AFTERNOON
     Route: 065

REACTIONS (2)
  - Foreign body in respiratory tract [Fatal]
  - Foreign body aspiration [Fatal]
